FAERS Safety Report 10505859 (Version 1)
Quarter: 2014Q4

REPORT INFORMATION
  Report Type: Spontaneous
  Country: US (occurrence: US)
  Receive Date: 20141008
  Receipt Date: 20141008
  Transmission Date: 20150528
  Serious: No
  Sender: FDA-Public Use
  Company Number: US-SA-2014SA097126

PATIENT
  Age: 54 Year
  Sex: Female

DRUGS (2)
  1. ARAVA [Suspect]
     Active Substance: LEFLUNOMIDE
     Indication: RHEUMATOID ARTHRITIS
     Route: 065
     Dates: start: 201405
  2. HUMIRA [Suspect]
     Active Substance: ADALIMUMAB
     Indication: RHEUMATOID ARTHRITIS
     Dosage: STRENGTH: 40 MG
     Route: 065
     Dates: start: 20131209

REACTIONS (5)
  - Drug effect incomplete [Unknown]
  - Finger deformity [Unknown]
  - Pain [Unknown]
  - Drug ineffective [Unknown]
  - Foot deformity [Unknown]

NARRATIVE: CASE EVENT DATE: 2014
